FAERS Safety Report 5252424-0 (Version None)
Quarter: 2007Q1

REPORT INFORMATION
  Report Type: 
  Country: None (occurrence: None)
  Receive Date: 20070301
  Receipt Date: 20061101
  Transmission Date: 20070707
  Serious: Yes (Death)
  Sender: FDA-Public Use
  Company Number: US-BRISTOL-MYERS SQUIBB COMPANY-13539713

PATIENT
  Age: 61 Year
  Sex: Male

DRUGS (7)
  1. ERBITUX [Suspect]
     Indication: PANCREATIC CARCINOMA
     Route: 042
     Dates: start: 20060307, end: 20060307
  2. OXALIPLATIN [Concomitant]
     Dates: start: 20060227, end: 20060313
  3. AVASTIN [Concomitant]
     Dates: start: 20060227, end: 20060227
  4. ATIVAN [Concomitant]
  5. BENADRYL [Concomitant]
  6. DECADRON [Concomitant]
  7. KYTRIL [Concomitant]

REACTIONS (1)
  - MALIGNANT NEOPLASM PROGRESSION [None]
